FAERS Safety Report 6659845-X (Version None)
Quarter: 2010Q1

REPORT INFORMATION
  Report Type: 
  Country: None (occurrence: None)
  Receive Date: 20100330
  Receipt Date: 20100330
  Transmission Date: 20100710
  Serious: No
  Sender: FDA-Public Use
  Company Number: None

PATIENT
  Age: 44 Year
  Sex: Male

DRUGS (1)
  1. CEPHALEXIN [Suspect]
     Indication: TONSILLITIS
     Dosage: 500 MG BID PO
     Route: 048
     Dates: start: 20100325, end: 20100326

REACTIONS (1)
  - ANGIOEDEMA [None]
